FAERS Safety Report 25488419 (Version 1)
Quarter: 2025Q2

REPORT INFORMATION
  Report Type: Spontaneous
  Country: FR (occurrence: FR)
  Receive Date: 20250627
  Receipt Date: 20250627
  Transmission Date: 20250717
  Serious: Yes (Hospitalization, Other)
  Sender: AMGEN
  Company Number: None

PATIENT
  Age: 25 Year
  Sex: Male
  Weight: 82.4 kg

DRUGS (3)
  1. INTERFERON GAMMA [Suspect]
     Active Substance: INTERFERON GAMMA
     Indication: Mucormycosis
     Dosage: 100 MICROGRAM, 3 TIMES/WK
     Route: 058
     Dates: start: 20250419, end: 20250517
  2. AVIBACTAM SODIUM\CEFTAZIDIME [Suspect]
     Active Substance: AVIBACTAM SODIUM\CEFTAZIDIME
     Indication: Pseudomonas infection
     Dosage: 2 GRAM, Q8H (6 GRAM)
     Route: 040
     Dates: start: 20250408, end: 20250522
  3. CYAMEMAZINE [Suspect]
     Active Substance: CYAMEMAZINE
     Indication: Product used for unknown indication
     Dosage: 25 GTT DROPS, QD
     Route: 048
     Dates: start: 20250501, end: 20250519

REACTIONS (1)
  - Agranulocytosis [Recovered/Resolved]

NARRATIVE: CASE EVENT DATE: 20250520
